FAERS Safety Report 9886310 (Version 3)
Quarter: 2014Q2

REPORT INFORMATION
  Report Type: Spontaneous
  Country: JP (occurrence: JP)
  Receive Date: 20140210
  Receipt Date: 20140522
  Transmission Date: 20141212
  Serious: Yes (Hospitalization, Other)
  Sender: FDA-Public Use
  Company Number: JP-JNJFOC-20140204548

PATIENT
  Age: 69 Year
  Sex: Female
  Weight: 58 kg

DRUGS (7)
  1. SOVRIAD [Suspect]
     Indication: CHRONIC HEPATITIS C
     Route: 048
     Dates: start: 20131213, end: 20140130
  2. PEGASYS [Suspect]
     Indication: CHRONIC HEPATITIS C
     Route: 058
     Dates: start: 20131213, end: 20140124
  3. COPEGUS [Suspect]
     Indication: CHRONIC HEPATITIS C
     Route: 048
     Dates: start: 20131213, end: 20140130
  4. URSODEOXYCHOLIC ACID [Concomitant]
     Indication: HYPERPLASTIC CHOLECYSTOPATHY
     Dosage: PERORAL MEDICINE
     Route: 048
     Dates: start: 200909
  5. CODIOVAN [Concomitant]
     Indication: HYPERTENSION
     Dosage: PERORAL MEDICINE
     Route: 048
     Dates: start: 1991
  6. BONOTEO [Concomitant]
     Indication: OSTEOPOROSIS
     Dosage: PERORAL MEDICINE
     Route: 048
     Dates: start: 1991
  7. ESTRIOL [Concomitant]
     Indication: OSTEOPOROSIS
     Dosage: PERORAL MEDICINE
     Route: 048
     Dates: start: 1991

REACTIONS (4)
  - Cellulitis [Recovering/Resolving]
  - Renal disorder [Recovering/Resolving]
  - Hepatic failure [Unknown]
  - Hyperuricaemia [Recovering/Resolving]
